FAERS Safety Report 6595326-X (Version None)
Quarter: 2010Q1

REPORT INFORMATION
  Report Type: 
  Country: None (occurrence: None)
  Receive Date: 20100219
  Receipt Date: 20100219
  Transmission Date: 20100710
  Serious: No
  Sender: FDA-Public Use
  Company Number: None

PATIENT

DRUGS (1)
  1. AZITHROMYCIN 500 MG APP PHARMACEUTICAL [Suspect]
     Dates: start: 20100218

REACTIONS (1)
  - PRODUCT DEPOSIT [None]
